FAERS Safety Report 8850519 (Version 1)
Quarter: 2012Q4

REPORT INFORMATION
  Report Type: Report from Study
  Country: AU (occurrence: AU)
  Receive Date: 20121019
  Receipt Date: 20121019
  Transmission Date: 20130627
  Serious: Yes (Hospitalization, Other)
  Sender: FDA-Public Use
  Company Number: AU-ROCHE-1146596

PATIENT
  Age: 74 Year
  Sex: Female

DRUGS (9)
  1. TOCILIZUMAB [Suspect]
     Indication: RHEUMATOID ARTHRITIS
     Route: 042
  2. SPIRACTIN [Concomitant]
     Indication: FLUID RETENTION
     Dosage: 7-8 years ago
     Route: 048
  3. SPIRACTIN [Concomitant]
     Indication: HYPERTENSION
  4. FRUSEMIDE [Concomitant]
     Indication: FLUID RETENTION
     Dosage: 7-8 years ago
     Route: 048
  5. ATACAND [Concomitant]
     Indication: HYPERTENSION
     Dosage: 7-8 years ago
     Route: 048
  6. FELODUR [Concomitant]
     Indication: HYPERTENSION
     Dosage: 7-8 years
     Route: 048
  7. PANADOL OSTEO [Concomitant]
     Indication: OSTEOARTHRITIS
     Dosage: 2-3 times daily
     Route: 048
  8. NEXIUM [Concomitant]
     Indication: GASTROOESOPHAGEAL REFLUX DISEASE
     Dosage: 6 years
     Route: 048
  9. LIPITOR [Concomitant]
     Indication: BLOOD CHOLESTEROL
     Dosage: 5 years
     Route: 048

REACTIONS (4)
  - Blood sodium decreased [Recovered/Resolved]
  - Dehydration [Recovered/Resolved]
  - Dyspnoea [Unknown]
  - Fluid overload [Unknown]
